FAERS Safety Report 8540177-X (Version None)
Quarter: 2012Q3

REPORT INFORMATION
  Report Type: 
  Country: None (occurrence: None)
  Receive Date: 20120726
  Receipt Date: 20120720
  Transmission Date: 20120928
  Serious: Yes (Other)
  Sender: FDA-Public Use
  Company Number: US-PFIZER INC-2012176293

PATIENT
  Sex: Female
  Weight: 63.492 kg

DRUGS (6)
  1. LYRICA [Suspect]
     Indication: PAIN
     Dosage: 300 MG, 3X/DAY
     Route: 048
     Dates: start: 20110101, end: 20120101
  2. LORAZEPAM [Suspect]
     Indication: ANXIETY
     Dosage: 10 MG, 3X/DAY
  3. LORTAB [Suspect]
     Indication: PAIN
     Dosage: UNK
  4. LYRICA [Suspect]
     Dosage: 100 MG, 3X/DAY
     Route: 048
     Dates: start: 20120101, end: 20120717
  5. LORAZEPAM [Suspect]
     Indication: MUSCLE RELAXANT THERAPY
  6. LYRICA [Suspect]
     Dosage: 200 MG, 3X/DAY
     Route: 048
     Dates: start: 20120101, end: 20120101

REACTIONS (14)
  - DIARRHOEA [None]
  - DEPRESSION [None]
  - FEELING ABNORMAL [None]
  - EUPHORIC MOOD [None]
  - DRUG DEPENDENCE [None]
  - DIZZINESS [None]
  - NAUSEA [None]
  - ANXIETY [None]
  - ASTHENIA [None]
  - PAIN [None]
  - AGGRESSION [None]
  - INSOMNIA [None]
  - IRRITABILITY [None]
  - CIRCUMSTANCE OR INFORMATION CAPABLE OF LEADING TO MEDICATION ERROR [None]
